FAERS Safety Report 20892369 (Version 1)
Quarter: 2022Q2

REPORT INFORMATION
  Report Type: Spontaneous
  Country: US (occurrence: US)
  Receive Date: 20220530
  Receipt Date: 20220530
  Transmission Date: 20220720
  Serious: No
  Sender: FDA-Public Use
  Company Number: US-BRISTOL-MYERS SQUIBB COMPANY-2022-039271

PATIENT
  Age: 71 Year
  Sex: Female

DRUGS (12)
  1. REVLIMID [Suspect]
     Active Substance: LENALIDOMIDE
     Indication: Plasma cell myeloma
     Dosage: TAKE 1 CAPSULE BY MOUTH DAILY  FOR 21 DAYS ,OFF FOR 7 DAYS FOR A 28 DAY CYCLE.
     Route: 048
     Dates: start: 20220211
  2. DECADRON [Concomitant]
     Active Substance: DEXAMETHASONE
  3. PENICILLIN V POTASSIUM [Concomitant]
     Active Substance: PENICILLIN V POTASSIUM
  4. ANASTROZOLE [Concomitant]
     Active Substance: ANASTROZOLE
  5. CALCIUM +D3 AKTIV [Concomitant]
  6. DARZALEX [Concomitant]
     Active Substance: DARATUMUMAB
  7. LEVOTHYROXINE [Concomitant]
     Active Substance: LEVOTHYROXINE
  8. LEVOTHYROXINE [Concomitant]
     Active Substance: LEVOTHYROXINE
  9. VALACYCLOVIR [Concomitant]
     Active Substance: VALACYCLOVIR HYDROCHLORIDE
  10. VELCADE [Concomitant]
     Active Substance: BORTEZOMIB
  11. VITAMIN B6 [Concomitant]
     Active Substance: PYRIDOXINE HYDROCHLORIDE
  12. ZYRTEC [Concomitant]
     Active Substance: CETIRIZINE HYDROCHLORIDE

REACTIONS (1)
  - Adverse event [Unknown]
